FAERS Safety Report 7912013-3 (Version None)
Quarter: 2011Q4

REPORT INFORMATION
  Report Type: 
  Country: None (occurrence: None)
  Receive Date: 20111114
  Receipt Date: 20111109
  Transmission Date: 20120403
  Serious: Yes (Other)
  Sender: FDA-Public Use
  Company Number: GB-TEVA-308596ISR

PATIENT
  Age: 78 Year
  Sex: Male

DRUGS (6)
  1. LOSARTAN [Suspect]
     Indication: HYPERTENSION
     Dosage: 25 MILLIGRAM; 25MG EACH MORNING
     Route: 048
     Dates: start: 20111024, end: 20111028
  2. ASPIRIN [Concomitant]
  3. VIAZEM XL [Concomitant]
  4. SIMVASTATIN [Concomitant]
  5. VENTOLIN [Concomitant]
  6. DOXAZOSIN MESYLATE [Concomitant]

REACTIONS (1)
  - ASTHMA [None]
